FAERS Safety Report 23896959 (Version 1)
Quarter: 2024Q2

REPORT INFORMATION
  Report Type: Spontaneous
  Country: US (occurrence: None)
  Receive Date: 20240524
  Receipt Date: 20240524
  Transmission Date: 20240715
  Serious: Yes (Life-Threatening, Hospitalization, Disabling, Other)
  Sender: FDA-Public Use
  Company Number: None

PATIENT
  Age: 55 Year
  Sex: Male
  Weight: 69.75 kg

DRUGS (1)
  1. HERBALS\MITRAGYNINE [Suspect]
     Active Substance: HERBALS\MITRAGYNINE
     Dosage: 10 CAPSULES AS NEEDED ORAL
     Route: 048
     Dates: start: 20240517, end: 20240520

REACTIONS (4)
  - Diverticulitis [None]
  - Product residue present [None]
  - Colostomy [None]
  - Pain [None]

NARRATIVE: CASE EVENT DATE: 20240520
